FAERS Safety Report 6642759-9 (Version None)
Quarter: 2010Q1

REPORT INFORMATION
  Report Type: 
  Country: None (occurrence: None)
  Receive Date: 20100319
  Receipt Date: 20100310
  Transmission Date: 20100710
  Serious: Yes (Other)
  Sender: FDA-Public Use
  Company Number: US-ELI_LILLY_AND_COMPANY-US200903003336

PATIENT
  Sex: Female
  Weight: 113.38 kg

DRUGS (11)
  1. BYETTA [Suspect]
     Dosage: 5 UG, 2/D
     Dates: start: 20070401, end: 20070101
  2. GLIPIZIDE [Concomitant]
     Indication: TYPE 2 DIABETES MELLITUS
     Dosage: 10 MG, 2/D
  3. LANTUS [Concomitant]
     Indication: TYPE 2 DIABETES MELLITUS
  4. COZAAR [Concomitant]
  5. ZOLOFT [Concomitant]
     Indication: DEPRESSION
  6. FOLIC ACID [Concomitant]
     Dosage: 800 UG, 2/D
  7. SLOW-FE [Concomitant]
  8. AXID [Concomitant]
  9. LIPITOR [Concomitant]
  10. ALEVE (CAPLET) [Concomitant]
  11. METFORMIN [Concomitant]
     Dosage: 1000 MG, DAILY (1/D)
     Dates: end: 20070803

REACTIONS (4)
  - IMPAIRED GASTRIC EMPTYING [None]
  - OFF LABEL USE [None]
  - PANCREATITIS [None]
  - RENAL FAILURE CHRONIC [None]
